FAERS Safety Report 7747043-8 (Version None)
Quarter: 2011Q3

REPORT INFORMATION
  Report Type: 
  Country: None (occurrence: None)
  Receive Date: 20110913
  Receipt Date: 20110909
  Transmission Date: 20111222
  Serious: Yes (Death)
  Sender: FDA-Public Use
  Company Number: PHHY2011BR80719

PATIENT
  Sex: Female

DRUGS (2)
  1. SPIRIVA [Concomitant]
  2. FORMOTEROL FUMARATE [Suspect]

REACTIONS (1)
  - DEATH [None]
